FAERS Safety Report 16510496 (Version 1)
Quarter: 2019Q3

REPORT INFORMATION
  Report Type: Spontaneous
  Country: US (occurrence: US)
  Receive Date: 20190701
  Receipt Date: 20190701
  Transmission Date: 20191004
  Serious: No
  Sender: FDA-Public Use
  Company Number: US-TEVA-2019-US-1065309

PATIENT
  Sex: Female

DRUGS (2)
  1. ACTAVIS LORAZEPAM [Suspect]
     Active Substance: LORAZEPAM
     Indication: ANXIETY
     Dates: start: 20190528
  2. ACTAVIS LORAZEPAM [Suspect]
     Active Substance: LORAZEPAM
     Indication: DEPRESSION

REACTIONS (2)
  - Drug ineffective [Unknown]
  - Product quality issue [Unknown]

NARRATIVE: CASE EVENT DATE: 20190530
